FAERS Safety Report 6971387-0 (Version None)
Quarter: 2010Q3

REPORT INFORMATION
  Report Type: 
  Country: None (occurrence: None)
  Receive Date: 20100908
  Receipt Date: 20100828
  Transmission Date: 20110219
  Serious: Yes (Other)
  Sender: FDA-Public Use
  Company Number: US-JNJFOC-20100901619

PATIENT
  Sex: Male
  Weight: 79.38 kg

DRUGS (1)
  1. SIMPONI [Suspect]
     Indication: RHEUMATOID ARTHRITIS
     Route: 058

REACTIONS (11)
  - BACK PAIN [None]
  - CHEST PAIN [None]
  - DECREASED APPETITE [None]
  - EYE DISORDER [None]
  - EYE SWELLING [None]
  - HEPATIC PAIN [None]
  - HEPATOMEGALY [None]
  - PARAESTHESIA [None]
  - PHOTOPHOBIA [None]
  - PYREXIA [None]
  - VOMITING [None]
